FAERS Safety Report 5457292-X (Version None)
Quarter: 2007Q3

REPORT INFORMATION
  Report Type: 
  Country: None (occurrence: None)
  Receive Date: 20070918
  Receipt Date: 20070702
  Transmission Date: 20080115
  Serious: No
  Sender: FDA-Public Use
  Company Number: US-ASTRAZENECA-2007UW01901

PATIENT
  Sex: Female
  Weight: 117.3 kg

DRUGS (24)
  1. SEROQUEL [Suspect]
     Indication: BIPOLAR DISORDER
     Route: 048
     Dates: start: 19990101, end: 20030123
  2. SEROQUEL [Suspect]
     Indication: SCHIZOPHRENIA
     Route: 048
     Dates: start: 19990101, end: 20030123
  3. SEROQUEL [Suspect]
     Indication: DEPRESSION
     Route: 048
     Dates: start: 19990101, end: 20030123
  4. SEROQUEL [Suspect]
     Route: 048
     Dates: start: 20051108
  5. SEROQUEL [Suspect]
     Route: 048
     Dates: start: 20051108
  6. SEROQUEL [Suspect]
     Route: 048
     Dates: start: 20051108
  7. SEROQUEL [Suspect]
     Route: 048
     Dates: start: 20051225, end: 20070109
  8. SEROQUEL [Suspect]
     Route: 048
     Dates: start: 20051225, end: 20070109
  9. SEROQUEL [Suspect]
     Route: 048
     Dates: start: 20051225, end: 20070109
  10. SEROQUEL [Suspect]
     Route: 048
     Dates: start: 20060720, end: 20070116
  11. SEROQUEL [Suspect]
     Route: 048
     Dates: start: 20060720, end: 20070116
  12. SEROQUEL [Suspect]
     Route: 048
     Dates: start: 20060720, end: 20070116
  13. SEROQUEL [Suspect]
     Route: 048
     Dates: start: 20070118, end: 20070201
  14. SEROQUEL [Suspect]
     Route: 048
     Dates: start: 20070118, end: 20070201
  15. SEROQUEL [Suspect]
     Route: 048
     Dates: start: 20070118, end: 20070201
  16. HALDOL [Concomitant]
     Indication: SCHIZOPHRENIA
     Dates: start: 19990101
  17. HALDOL [Concomitant]
     Route: 048
     Dates: start: 20021205, end: 20021217
  18. RISPERDAL [Concomitant]
     Indication: BIPOLAR DISORDER
     Route: 048
     Dates: start: 19990101
  19. RISPERDAL [Concomitant]
     Dosage: 1 MG - 2 MG
     Route: 048
     Dates: start: 20010813
  20. GEODON [Concomitant]
     Indication: BIPOLAR DISORDER
     Route: 048
     Dates: start: 19990101
  21. GEODON [Concomitant]
     Dosage: 20 MG - 80 MG
     Dates: start: 20020610, end: 20060901
  22. SYMBYAX [Concomitant]
     Dosage: 6 MG - 25 MG
     Route: 048
     Dates: start: 20040310
  23. LEXAPRO [Concomitant]
     Indication: DEPRESSION
     Route: 048
     Dates: start: 19990101
  24. ZOLOFT [Concomitant]
     Indication: DEPRESSION
     Route: 048
     Dates: start: 19990101

REACTIONS (3)
  - FALL [None]
  - GESTATIONAL DIABETES [None]
  - TYPE 2 DIABETES MELLITUS [None]
